FAERS Safety Report 15450056 (Version 1)
Quarter: 2018Q4

REPORT INFORMATION
  Report Type: Spontaneous
  Country: US (occurrence: US)
  Receive Date: 20181001
  Receipt Date: 20181001
  Transmission Date: 20190204
  Serious: No
  Sender: FDA-Public Use
  Company Number: US-PFIZER INC-2015364372

PATIENT
  Age: 65 Year
  Sex: Female

DRUGS (20)
  1. COUMADIN [Concomitant]
     Active Substance: WARFARIN SODIUM
     Dosage: 2.5 MG, CYCLIC (2.5MG TABLET TAKE 2 TABS PO X 1DAYS/WEEK, 3 TABS POX 1 DAY/WEEK #200)
     Route: 048
  2. NOVOLOG [Concomitant]
     Active Substance: INSULIN ASPART
     Dosage: 75 IU, 2X/DAY (75 UNITS SQ BID)
     Route: 058
  3. MELOXICAM. [Concomitant]
     Active Substance: MELOXICAM
     Dosage: UNK, DAILY (3-4 TIMES DAILY)
  4. TOPIRAMATE. [Concomitant]
     Active Substance: TOPIRAMATE
     Dosage: UNK UNK, DAILY (3-4 TIMES DAILY)
  5. SYNTHROID [Concomitant]
     Active Substance: LEVOTHYROXINE SODIUM
     Dosage: 0.2 MG, DAILY (0.2MGTABLET TAKE 1 TABLET(S) BY MOUTH DAILY)
     Route: 048
  6. METFORMIN HCL [Concomitant]
     Active Substance: METFORMIN HYDROCHLORIDE
     Dosage: 500 MG, 2X/DAY
     Route: 048
  7. FOLIC ACID. [Concomitant]
     Active Substance: FOLIC ACID
     Dosage: 2.4 MG, DAILY (0.8MG TABLETS TAKE 3 TABLETS BY MOUTH DAILY)
     Route: 048
  8. ASPIRIN [ACETYLSALICYLIC ACID] [Concomitant]
     Active Substance: ASPIRIN
     Dosage: 325 MG, 1X/DAY (1 TABLET(S) BY MOUTH Q AM )
     Route: 048
  9. VITAMIN B6 [Concomitant]
     Active Substance: PYRIDOXINE HYDROCHLORIDE
     Dosage: 50 MG, DAILY (50MG TABLET TAKE 1 TABLET(S) BY MOUTH DAILY)
     Route: 048
  10. LOSARTAN/HYDROCHLOROTHIAZIDE ALMUS [Concomitant]
     Dosage: UNK UNK, DAILY (100MG/12.5MG TABLET TAKE L TABLET(S)
     Route: 048
  11. CITALOPRAM HYDROBROMIDE. [Concomitant]
     Active Substance: CITALOPRAM HYDROBROMIDE
     Dosage: 40 MG, DAILY
     Route: 048
  12. FLONASE [Concomitant]
     Active Substance: FLUTICASONE PROPIONATE
     Dosage: 100 UG, 2X/DAY (50MCG/1 ACTUATION NASAL SPRAY L SPRAY(S) EACH NOSTRIL BID)
     Route: 045
  13. LYRICA [Suspect]
     Active Substance: PREGABALIN
     Dosage: 100 MG, 3X/DAY
     Route: 048
  14. METRONIDAZOLE. [Concomitant]
     Active Substance: METRONIDAZOLE
     Dosage: UNK UNK, DAILY (0.75% CREAM APPLY THIN FILM TO AFFECTED AREA DAILY)
     Route: 061
  15. LIDOCAINE. [Concomitant]
     Active Substance: LIDOCAINE
     Dosage: UNK, DAILY (3-4 TIMES DAILY)
  16. PRILOCAINE [Concomitant]
     Active Substance: PRILOCAINE
     Dosage: UNK, DAILY (3-4 TIMES DAILY)
  17. VITAMIN B12 [Concomitant]
     Active Substance: CYANOCOBALAMIN
     Dosage: 1000 UG, DAILY (1,000 MCG TABLET TAKE 1TABLET(S) BY MOUTH DAILY)
     Route: 048
  18. RANITIDINE. [Concomitant]
     Active Substance: RANITIDINE
     Dosage: 150 MG, 1X/DAY
  19. ALLOPURINOL. [Concomitant]
     Active Substance: ALLOPURINOL
     Dosage: 300 MG, 1X/DAY
     Route: 048
  20. PRAVASTATIN. [Concomitant]
     Active Substance: PRAVASTATIN
     Dosage: 10 MG, 1X/DAY (10MG TABLET TAKE 1 TABLET(S) BY MOUTH AT BEDTIME)
     Route: 048

REACTIONS (2)
  - Malaise [Unknown]
  - Irritability [Unknown]
